FAERS Safety Report 5251282-8 (Version None)
Quarter: 2007Q1

REPORT INFORMATION
  Report Type: 
  Country: None (occurrence: None)
  Receive Date: 20070228
  Receipt Date: 20061227
  Transmission Date: 20070707
  Serious: No
  Sender: FDA-Public Use
  Company Number: US-GLAXOSMITHKLINE-A0632617A

PATIENT
  Age: 21 Year
  Sex: Female

DRUGS (5)
  1. LAMICTAL [Suspect]
     Indication: BIPOLAR DISORDER
     Dosage: 150MG PER DAY
     Route: 048
  2. ABILIFY [Concomitant]
  3. BUPROPION HCL [Concomitant]
  4. RITALIN [Concomitant]
  5. THYROID TAB [Concomitant]

REACTIONS (2)
  - ERYTHEMA [None]
  - PRURITUS [None]
